FAERS Safety Report 6820759-3 (Version None)
Quarter: 2010Q3

REPORT INFORMATION
  Report Type: 
  Country: None (occurrence: None)
  Receive Date: 20100707
  Receipt Date: 20070516
  Transmission Date: 20110219
  Serious: No
  Sender: FDA-Public Use
  Company Number: US-PFIZER INC-2006042017

PATIENT
  Sex: Female
  Weight: 49.9 kg

DRUGS (3)
  1. ZOLOFT [Suspect]
     Route: 048
     Dates: start: 20050201, end: 20051101
  2. ALL OTHER THERAPEUTIC PRODUCTS [Suspect]
     Indication: TIC
     Dates: start: 20050101, end: 20050101
  3. ACTONEL [Concomitant]
     Route: 048

REACTIONS (10)
  - ABNORMAL DREAMS [None]
  - AGITATION [None]
  - ALOPECIA [None]
  - DRY MOUTH [None]
  - INSOMNIA [None]
  - PALPITATIONS [None]
  - SOMNOLENCE [None]
  - TIC [None]
  - WEIGHT INCREASED [None]
  - WEIGHT LOSS POOR [None]
